FAERS Safety Report 7250204-8 (Version None)
Quarter: 2011Q1

REPORT INFORMATION
  Report Type: 
  Country: None (occurrence: None)
  Receive Date: 20110128
  Receipt Date: 20101216
  Transmission Date: 20110831
  Serious: Yes (Hospitalization, Other)
  Sender: FDA-Public Use
  Company Number: US-BAYER-201029354NA

PATIENT
  Sex: Female
  Weight: 63.492 kg

DRUGS (3)
  1. YAZ [Suspect]
     Indication: MENORRHAGIA
  2. YAZ [Suspect]
     Indication: MENSTRUAL CYCLE MANAGEMENT
  3. YAZ [Suspect]
     Indication: ORAL CONTRACEPTION
     Dosage: UNK UNK, QD
     Route: 048
     Dates: start: 20080327, end: 20080524

REACTIONS (6)
  - PAIN IN EXTREMITY [None]
  - PULMONARY EMBOLISM [None]
  - BACK PAIN [None]
  - INFARCTION [None]
  - CHEST PAIN [None]
  - ATELECTASIS [None]
